FAERS Safety Report 16100647 (Version 2)
Quarter: 2019Q2

REPORT INFORMATION
  Report Type: Spontaneous
  Country: GB (occurrence: GB)
  Receive Date: 20190321
  Receipt Date: 20190417
  Transmission Date: 20190711
  Serious: Yes (Hospitalization, Other)
  Sender: FDA-Public Use
  Company Number: GB-SA-2019SA071914

PATIENT
  Age: 60 Year
  Sex: Male

DRUGS (3)
  1. ACETYLSALICYLIC ACID [Suspect]
     Active Substance: ASPIRIN
     Dosage: UNK
     Route: 065
  2. LISINOPRIL. [Suspect]
     Active Substance: LISINOPRIL
     Dosage: UNK
     Route: 065
  3. RANITIDINE. [Suspect]
     Active Substance: RANITIDINE
     Dosage: UNK
     Route: 065

REACTIONS (17)
  - Stridor [Recovered/Resolved]
  - Post procedural haemorrhage [Unknown]
  - Myocardial infarction [Recovered/Resolved]
  - Respiratory distress [Recovered/Resolved]
  - Agitation [Recovered/Resolved]
  - Oxygen saturation decreased [Recovered/Resolved]
  - Haemorrhage [Recovered/Resolved]
  - Tachycardia [Recovered/Resolved]
  - Wheezing [Recovered/Resolved]
  - Pneumopericardium [Recovered/Resolved]
  - Acute myocardial infarction [Unknown]
  - Dyspnoea [Unknown]
  - Pneumothorax [Unknown]
  - Anaphylactic reaction [Unknown]
  - Cyanosis central [Recovered/Resolved]
  - Laryngeal oedema [Recovered/Resolved]
  - Subcutaneous emphysema [Recovered/Resolved]
